FAERS Safety Report 19587362 (Version 1)
Quarter: 2021Q3

REPORT INFORMATION
  Report Type: Spontaneous
  Country: US (occurrence: US)
  Receive Date: 20210720
  Receipt Date: 20210720
  Transmission Date: 20211014
  Serious: Yes (Death, Life-Threatening, Hospitalization)
  Sender: FDA-Public Use
  Company Number: None

PATIENT
  Age: 38 Year
  Sex: Female
  Weight: 57 kg

DRUGS (13)
  1. OXYCODONE [Concomitant]
     Active Substance: OXYCODONE
     Dates: start: 20200513
  2. PROCHLORPERAZINE. [Concomitant]
     Active Substance: PROCHLORPERAZINE
     Dates: start: 20210215
  3. ATORVASTATIN [Concomitant]
     Active Substance: ATORVASTATIN
     Dates: start: 20190712
  4. ESOMEPRAZOLE. [Concomitant]
     Active Substance: ESOMEPRAZOLE MAGNESIUM
     Dates: start: 20210210
  5. MITOMYCIN. [Suspect]
     Active Substance: MITOMYCIN
     Indication: ANAL CANCER
     Dosage: ?          OTHER FREQUENCY:Q 28 DAYS X2;?
     Route: 042
     Dates: start: 20210215, end: 20210412
  6. FLOUROURACIL [Concomitant]
     Active Substance: FLUOROURACIL
     Dates: start: 20210214, end: 20210412
  7. DULOXETINE. [Concomitant]
     Active Substance: DULOXETINE
     Dates: start: 20210102
  8. LEVONORGESTREL IUD [Concomitant]
     Dates: start: 20190930
  9. LORAZEPAM. [Concomitant]
     Active Substance: LORAZEPAM
     Dates: start: 20210102
  10. METOPROLOL TARTRATE. [Concomitant]
     Active Substance: METOPROLOL TARTRATE
     Dates: start: 20210417
  11. MIRTAZAPINE. [Concomitant]
     Active Substance: MIRTAZAPINE
     Dates: start: 20210417
  12. ONDANSETRON [Concomitant]
     Active Substance: ONDANSETRON
     Dates: start: 20181025
  13. BUSPIRONE [Concomitant]
     Active Substance: BUSPIRONE HYDROCHLORIDE
     Dates: start: 20210506

REACTIONS (6)
  - Pulmonary hypertension [None]
  - Hypoxia [None]
  - Pulmonary oedema [None]
  - Cardiac arrest [None]
  - Pericardial effusion [None]
  - Tachycardia [None]

NARRATIVE: CASE EVENT DATE: 20210603
